FAERS Safety Report 15712810 (Version 2)
Quarter: 2025Q3

REPORT INFORMATION
  Report Type: Spontaneous
  Country: EU (occurrence: EU)
  Receive Date: 20181212
  Receipt Date: 20250814
  Transmission Date: 20251020
  Serious: Yes (Hospitalization, Congenital Anomaly, Other)
  Sender: AUROBINDO
  Company Number: EU-AUROBINDO-AUR-APL-2018-059648

PATIENT
  Sex: Male

DRUGS (1)
  1. ACETAMINOPHEN [Suspect]
     Active Substance: ACETAMINOPHEN
     Indication: Urinary retention
     Route: 064

REACTIONS (12)
  - Cyanosis [Recovering/Resolving]
  - Right ventricular dilatation [Recovering/Resolving]
  - Cardiomegaly [Recovering/Resolving]
  - Oxygen saturation decreased [Recovered/Resolved]
  - Foetal exposure during pregnancy [Unknown]
  - Ductus arteriosus premature closure [Unknown]
  - Tricuspid valve incompetence [Recovering/Resolving]
  - Right ventricular hypertrophy [Recovering/Resolving]
  - Pericardial effusion [Recovered/Resolved]
  - Cardiac septal hypertrophy [Recovering/Resolving]
  - Congenital cardiovascular anomaly [Not Recovered/Not Resolved]
  - Ventricular hypokinesia [Recovering/Resolving]
